FAERS Safety Report 7283836-1 (Version None)
Quarter: 2011Q1

REPORT INFORMATION
  Report Type: 
  Country: None (occurrence: None)
  Receive Date: 20110209
  Receipt Date: 20110131
  Transmission Date: 20110831
  Serious: Yes (Other)
  Sender: FDA-Public Use
  Company Number: US-CEPHALON-2011000522

PATIENT
  Sex: Female
  Weight: 91 kg

DRUGS (5)
  1. LEVOXYL [Concomitant]
  2. NUVIGIL [Suspect]
     Indication: SOMNOLENCE
     Route: 048
     Dates: start: 20110128, end: 20110130
  3. SIMVASTATIN [Concomitant]
  4. DIOVAN [Concomitant]
  5. DEXTROAMPHETAMINE [Concomitant]

REACTIONS (10)
  - ANXIETY [None]
  - INSOMNIA [None]
  - HYPERSENSITIVITY [None]
  - STOMATITIS [None]
  - GINGIVITIS [None]
  - ORAL PAIN [None]
  - DYSPNOEA [None]
  - SWOLLEN TONGUE [None]
  - OROPHARYNGEAL PAIN [None]
  - TONGUE DISORDER [None]
